FAERS Safety Report 7012909-3 (Version None)
Quarter: 2010Q3

REPORT INFORMATION
  Report Type: 
  Country: None (occurrence: None)
  Receive Date: 20100924
  Receipt Date: 20100913
  Transmission Date: 20110219
  Serious: Yes (Hospitalization, Other)
  Sender: FDA-Public Use
  Company Number: US-PFIZER INC-2009193198

PATIENT
  Sex: Female

DRUGS (1)
  1. DETROL LA [Suspect]
     Dosage: 4 MG, UNK

REACTIONS (15)
  - BLINDNESS [None]
  - CEREBROVASCULAR ACCIDENT [None]
  - CERVICAL VERTEBRAL FRACTURE [None]
  - CIRCUMSTANCE OR INFORMATION CAPABLE OF LEADING TO MEDICATION ERROR [None]
  - DEAFNESS [None]
  - DIZZINESS [None]
  - FALL [None]
  - GAIT DISTURBANCE [None]
  - IMPAIRED HEALING [None]
  - LIMB INJURY [None]
  - NEUROPATHY PERIPHERAL [None]
  - PELVIC FRACTURE [None]
  - UPPER LIMB FRACTURE [None]
  - VISION BLURRED [None]
  - WRIST FRACTURE [None]
